FAERS Safety Report 7893737-3 (Version None)
Quarter: 2011Q4

REPORT INFORMATION
  Report Type: 
  Country: None (occurrence: None)
  Receive Date: 20111104
  Receipt Date: 20111027
  Transmission Date: 20120403
  Serious: Yes (Other)
  Sender: FDA-Public Use
  Company Number: PHHY2011DK96407

PATIENT
  Sex: Female

DRUGS (3)
  1. HUMIRA [Suspect]
     Indication: SERONEGATIVE ARTHRITIS
     Dosage: 40 MG, BIW
     Route: 065
     Dates: start: 20060112, end: 20110701
  2. METHOTREXATE [Suspect]
     Route: 048
     Dates: start: 20031024, end: 20091208
  3. METHOTREXATE [Suspect]
     Dosage: UNK
     Route: 058
     Dates: start: 20040526, end: 20110701

REACTIONS (1)
  - OESOPHAGEAL CARCINOMA [None]
